FAERS Safety Report 16962312 (Version 1)
Quarter: 2019Q4

REPORT INFORMATION
  Report Type: Spontaneous
  Country: US (occurrence: US)
  Receive Date: 20190907
  Receipt Date: 20190907
  Transmission Date: 20200122
  Serious: No
  Sender: FDA-Public Use
  Company Number: None

PATIENT
  Age: 45 Year
  Sex: Male

DRUGS (2)
  1. HUMIRA [Suspect]
     Active Substance: ADALIMUMAB
     Indication: COLITIS ULCERATIVE
     Dosage: ?          OTHER ROUTE:UNDER THE SKIN?
     Dates: start: 20180426, end: 20190830
  2. HUMIRA [Suspect]
     Active Substance: ADALIMUMAB
     Indication: PSORIASIS
     Dosage: ?          OTHER ROUTE:UNDER THE SKIN?
     Dates: start: 20180426, end: 20190830

REACTIONS (3)
  - Haemorrhage [None]
  - Psoriasis [None]
  - Drug ineffective [None]

NARRATIVE: CASE EVENT DATE: 20190830
